FAERS Safety Report 21720840 (Version 4)
Quarter: 2023Q1

REPORT INFORMATION
  Report Type: Spontaneous
  Country: CZ (occurrence: CZ)
  Receive Date: 20221213
  Receipt Date: 20230124
  Transmission Date: 20230417
  Serious: Yes (Other)
  Sender: FDA-Public Use
  Company Number: CZ-MYLANLABS-2022M1136417

PATIENT
  Age: 67 Year
  Sex: Female

DRUGS (10)
  1. LETROZOLE [Suspect]
     Active Substance: LETROZOLE
     Indication: Breast cancer
     Dosage: 2.5 MILLIGRAM, QD (2.5 MG/DAY)
     Route: 065
     Dates: start: 201710
  2. LETROZOLE [Suspect]
     Active Substance: LETROZOLE
     Indication: Hormone receptor positive HER2 negative breast cancer
  3. LETROZOLE [Suspect]
     Active Substance: LETROZOLE
     Indication: Bone cancer metastatic
  4. LETROZOLE [Suspect]
     Active Substance: LETROZOLE
     Indication: Malignant neoplasm of pleura metastatic
  5. RIBOCICLIB [Suspect]
     Active Substance: RIBOCICLIB
     Indication: Breast cancer
     Dosage: 600 MG, QD (FOR 3 WEEKS PLUS 1 WEEK BREAK)
     Route: 065
     Dates: start: 201710
  6. RIBOCICLIB [Suspect]
     Active Substance: RIBOCICLIB
     Indication: Hormone receptor positive HER2 negative breast cancer
     Dosage: 600 MILLIGRAM, QD (3 WEEKS +
     Route: 065
  7. DENOSUMAB [Concomitant]
     Active Substance: DENOSUMAB
     Indication: Breast cancer
     Dosage: UNK
     Route: 065
     Dates: start: 201710
  8. DENOSUMAB [Concomitant]
     Active Substance: DENOSUMAB
     Indication: Hormone receptor positive HER2 negative breast cancer
  9. DENOSUMAB [Concomitant]
     Active Substance: DENOSUMAB
     Indication: Bone cancer metastatic
  10. DENOSUMAB [Concomitant]
     Active Substance: DENOSUMAB
     Indication: Malignant neoplasm of pleura metastatic

REACTIONS (2)
  - Neutropenia [Not Recovered/Not Resolved]
  - Vitiligo [Unknown]
